FAERS Safety Report 4924658-3 (Version None)
Quarter: 2006Q1

REPORT INFORMATION
  Report Type: 
  Country: None (occurrence: None)
  Receive Date: 20060127
  Receipt Date: 20051214
  Transmission Date: 20060701
  Serious: Yes (Other)
  Sender: FDA-Public Use
  Company Number: 2005169779

PATIENT
  Sex: Male

DRUGS (1)
  1. LYRICA [Suspect]
     Indication: ILL-DEFINED DISORDER
     Dosage: 50 MG (25 MG ,2 IN 1 D)

REACTIONS (6)
  - ANXIETY [None]
  - DISORIENTATION [None]
  - DIZZINESS [None]
  - INCREASED APPETITE [None]
  - NAUSEA [None]
  - NEURALGIA [None]
